FAERS Safety Report 12481922 (Version 2)
Quarter: 2016Q3

REPORT INFORMATION
  Report Type: Other
  Country: GB (occurrence: GB)
  Receive Date: 20160620
  Receipt Date: 20160701
  Transmission Date: 20161109
  Serious: Yes (Life-Threatening)
  Sender: FDA-Public Use
  Company Number: GB-HQ SPECIALTY-GB-2016INT000379

PATIENT
  Age: 48 Year
  Weight: 118 kg

DRUGS (5)
  1. METHOTREXATE SODIUM. [Suspect]
     Active Substance: METHOTREXATE SODIUM
     Indication: PSORIATIC ARTHROPATHY
     Dosage: 7.5 MG
     Route: 048
     Dates: start: 20150202, end: 20160520
  2. METHOTREXATE SODIUM. [Suspect]
     Active Substance: METHOTREXATE SODIUM
     Indication: PSORIASIS
  3. ADALIMUMAB [Suspect]
     Active Substance: ADALIMUMAB
     Indication: PSORIASIS
  4. RAMIPRIL. [Concomitant]
     Active Substance: RAMIPRIL
     Indication: PRODUCT USED FOR UNKNOWN INDICATION
     Dosage: UNK
  5. ADALIMUMAB [Suspect]
     Active Substance: ADALIMUMAB
     Indication: PSORIATIC ARTHROPATHY
     Dosage: 2.8571 MG (40 MG, 1 IN 2 W)
     Route: 058
     Dates: start: 2011, end: 20160520

REACTIONS (3)
  - Soft tissue mass [Not Recovered/Not Resolved]
  - Nasopharyngeal cancer [Unknown]
  - VIth nerve paralysis [Unknown]

NARRATIVE: CASE EVENT DATE: 20160518
